FAERS Safety Report 12694207 (Version 1)
Quarter: 2016Q3

REPORT INFORMATION
  Report Type: Report from Study
  Country: US (occurrence: US)
  Receive Date: 20160829
  Receipt Date: 20160829
  Transmission Date: 20161109
  Serious: No
  Sender: FDA-Public Use
  Company Number: US-KAMADA LIMITED-2015US003440

PATIENT
  Age: 73 Year
  Sex: Male
  Weight: 70.3 kg

DRUGS (5)
  1. PRILOSEC [Concomitant]
     Active Substance: OMEPRAZOLE MAGNESIUM
  2. VALIUM [Concomitant]
     Active Substance: DIAZEPAM
     Indication: ANXIETY
     Dosage: WEEKLY
  3. GLASSIA [Suspect]
     Active Substance: .ALPHA.1-PROTEINASE INHIBITOR HUMAN
     Indication: ALPHA-1 ANTI-TRYPSIN DEFICIENCY
     Dosage: 60 MG/KG, WEEKLY
     Route: 042
     Dates: start: 20150312
  4. ADVAIR HFA [Concomitant]
     Active Substance: FLUTICASONE PROPIONATE\SALMETEROL XINAFOATE
  5. AVODART [Concomitant]
     Active Substance: DUTASTERIDE

REACTIONS (8)
  - Pyrexia [Recovered/Resolved]
  - Drug dose omission [Unknown]
  - Chills [Recovered/Resolved]
  - Headache [Recovered/Resolved]
  - Blood pressure increased [Unknown]
  - Dyspnoea [Recovered/Resolved]
  - Fatigue [Recovered/Resolved]
  - Anxiety [Unknown]

NARRATIVE: CASE EVENT DATE: 20150312
